FAERS Safety Report 7079451-5 (Version None)
Quarter: 2010Q4

REPORT INFORMATION
  Report Type: 
  Country: None (occurrence: None)
  Receive Date: 20101102
  Receipt Date: 20101027
  Transmission Date: 20110411
  Serious: Yes (Hospitalization)
  Sender: FDA-Public Use
  Company Number: US-BRISTOL-MYERS SQUIBB COMPANY-15354301

PATIENT
  Age: 39 Year
  Sex: Female
  Weight: 59 kg

DRUGS (3)
  1. IXEMPRA KIT [Suspect]
     Indication: CERVIX CARCINOMA
     Dosage: LAST DOSE:26SEP2010 6MG/KG IV ON DAYS 1-5
     Route: 042
     Dates: start: 20090827
  2. OXYCONTIN [Suspect]
  3. FENTANYL [Suspect]

REACTIONS (3)
  - ABDOMINAL PAIN [None]
  - DUODENAL OBSTRUCTION [None]
  - VOMITING [None]
